FAERS Safety Report 15255916 (Version 1)
Quarter: 2018Q3

REPORT INFORMATION
  Report Type: Spontaneous
  Country: US (occurrence: US)
  Receive Date: 20180808
  Receipt Date: 20180808
  Transmission Date: 20181010
  Serious: No
  Sender: FDA-Public Use
  Company Number: US-TARO-2017TAR00792

PATIENT
  Sex: Male

DRUGS (2)
  1. TERBINAFINE HCL CREAM 1% (MALE) [Suspect]
     Active Substance: TERBINAFINE HYDROCHLORIDE
     Dosage: UNK
  2. TERBINAFINE HCL CREAM 1% (MALE) [Suspect]
     Active Substance: TERBINAFINE HYDROCHLORIDE
     Indication: TINEA PEDIS
     Dosage: UNK

REACTIONS (2)
  - Drug ineffective [Not Recovered/Not Resolved]
  - Pruritus [Not Recovered/Not Resolved]
